FAERS Safety Report 23096376 (Version 1)
Quarter: 2023Q4

REPORT INFORMATION
  Report Type: Spontaneous
  Country: US (occurrence: None)
  Receive Date: 20231019
  Receipt Date: 20231019
  Transmission Date: 20240110
  Serious: Yes (Hospitalization)
  Sender: FDA-Public Use
  Company Number: None

PATIENT
  Age: 75 Year
  Sex: Male

DRUGS (3)
  1. HYDROCHLOROTHIAZIDE [Suspect]
     Active Substance: HYDROCHLOROTHIAZIDE
     Dates: start: 20211228, end: 20230312
  2. AMLODIPINE BESYLATE [Suspect]
     Active Substance: AMLODIPINE BESYLATE
     Dates: start: 20230111, end: 20230312
  3. LOSARTAN [Suspect]
     Active Substance: LOSARTAN

REACTIONS (2)
  - Hypotension [None]
  - Palpitations [None]

NARRATIVE: CASE EVENT DATE: 20230311
